FAERS Safety Report 9014388 (Version 1)
Quarter: 2013Q1

REPORT INFORMATION
  Report Type: Spontaneous
  Country: US (occurrence: US)
  Receive Date: 20130115
  Receipt Date: 20130115
  Transmission Date: 20140127
  Serious: Yes (Other)
  Sender: FDA-Public Use
  Company Number: US-SHIRE-ALL1-2012-06102

PATIENT
  Sex: Male
  Weight: 81.63 kg

DRUGS (3)
  1. LIALDA [Suspect]
     Indication: CROHN^S DISEASE
     Dosage: 1.2 G (4 TABS 1.2G), 1X/DAY:QD
     Route: 048
  2. LIALDA [Suspect]
     Dosage: 1.2 G (4 TABS PER DAY), 1X/DAY:QD
     Route: 048
  3. SYNTHROID [Concomitant]
     Indication: HYPOTHYROIDISM
     Dosage: UNK
     Route: 065

REACTIONS (5)
  - Myalgia [Recovered/Resolved]
  - Neck pain [Recovered/Resolved]
  - Pyrexia [Recovered/Resolved]
  - Back pain [Recovered/Resolved]
  - Off label use [Unknown]
